FAERS Safety Report 6305605-9 (Version None)
Quarter: 2009Q3

REPORT INFORMATION
  Report Type: 
  Country: None (occurrence: None)
  Receive Date: 20090806
  Receipt Date: 20090727
  Transmission Date: 20100115
  Serious: Yes (Hospitalization, Other)
  Sender: FDA-Public Use
  Company Number: JHP200900226

PATIENT
  Age: 26 Year
  Sex: Female

DRUGS (5)
  1. PITOCN (OXYTOCIN) INJECTION, 10U/ML [Suspect]
     Indication: POSTPARTUM HAEMORRHAGE
     Dosage: SEE IMAGE
     Route: 042
  2. ISOTONIC FLUID [Concomitant]
  3. HETASTARCH IN SODIUM CHLORIDE [Concomitant]
  4. BLOOD AND RELATED PRODUCTS [Concomitant]
  5. GENERAL ANESTHESIA [Concomitant]

REACTIONS (7)
  - COMA [None]
  - CONVULSION [None]
  - HYPONATRAEMIA [None]
  - POSTPARTUM HAEMORRHAGE [None]
  - POSTPARTUM VAGINAL LACERATION [None]
  - RETAINED PLACENTA OR MEMBRANES [None]
  - UTERINE CERVICAL LACERATION [None]
